FAERS Safety Report 10555324 (Version 2)
Quarter: 2014Q4

REPORT INFORMATION
  Report Type: Spontaneous
  Country: PT (occurrence: PT)
  Receive Date: 20141030
  Receipt Date: 20141110
  Transmission Date: 20150529
  Serious: Yes (Life-Threatening, Hospitalization, Other)
  Sender: FDA-Public Use
  Company Number: PT-WATSON-2014-23150

PATIENT
  Age: 49 Year
  Sex: Female

DRUGS (3)
  1. CEFAZOLIN (UNKNOWN) [Suspect]
     Active Substance: CEFAZOLIN
     Indication: GASTRECTOMY
     Dosage: UNK
     Route: 065
  2. ROCURONIUM [Concomitant]
     Active Substance: ROCURONIUM BROMIDE
     Indication: GASTRECTOMY
     Dosage: UNK
     Route: 065
  3. PROPOPHOL [Concomitant]
     Indication: GASTRECTOMY
     Dosage: UNK
     Route: 065

REACTIONS (1)
  - Anaphylactic reaction [Unknown]
